FAERS Safety Report 12472116 (Version 1)
Quarter: 2016Q2

REPORT INFORMATION
  Report Type: Report from Study
  Country: US (occurrence: US)
  Receive Date: 20160616
  Receipt Date: 20160616
  Transmission Date: 20160815
  Serious: Yes (Death, Hospitalization)
  Sender: FDA-Public Use
  Company Number: US-RECRO GAINESVILLE LLC-REC-2016-000007

PATIENT

DRUGS (1)
  1. VERAPAMIL HYDROCHLORIDE SUSTAINED RELEASE [Suspect]
     Active Substance: VERAPAMIL HYDROCHLORIDE
     Indication: PRODUCT USED FOR UNKNOWN INDICATION
     Dosage: 240 MG, UNK

REACTIONS (4)
  - Hypotension [Fatal]
  - Intentional overdose [Fatal]
  - Infusion related reaction [Unknown]
  - Vascular access complication [Recovered/Resolved]
